FAERS Safety Report 9640733 (Version 2)
Quarter: 2013Q4

REPORT INFORMATION
  Report Type: Spontaneous
  Country: US (occurrence: None)
  Receive Date: 20131021
  Receipt Date: 20131028
  Transmission Date: 20140711
  Serious: Yes (Other)
  Sender: FDA-Public Use
  Company Number: AUR-APL-2013-08536

PATIENT
  Age: 57 Year
  Sex: Male

DRUGS (3)
  1. LISINOPRIL (LISINOPRIL) [Suspect]
     Indication: PRODUCT USED FOR UNKNOWN INDICATION
     Route: 048
     Dates: start: 201211, end: 201306
  2. ENBREL (ETANERCEPT) [Suspect]
     Dosage: 50 MG, 1 WK, UNKNOWN
     Route: 058
     Dates: start: 201208
  3. ENBREL (ETANERCEPT) [Suspect]
     Dosage: 50 MG, 1 WK, UNKNOWN
     Route: 058
     Dates: start: 201208

REACTIONS (4)
  - Skin plaque [None]
  - Anaphylactic shock [None]
  - Pharyngeal oedema [None]
  - Dry skin [None]
